FAERS Safety Report 5059512-2 (Version None)
Quarter: 2006Q3

REPORT INFORMATION
  Report Type: 
  Country: None (occurrence: None)
  Receive Date: 20060724
  Receipt Date: 20050422
  Transmission Date: 20061208
  Serious: No
  Sender: FDA-Public Use
  Company Number: US-AMGEN-KDL129305

PATIENT
  Sex: Female

DRUGS (1)
  1. PROCRIT [Suspect]
     Indication: ANAEMIA
     Dates: start: 20040213

REACTIONS (3)
  - BAND NEUTROPHIL COUNT INCREASED [None]
  - METAMYELOCYTE COUNT INCREASED [None]
  - RED BLOOD CELL NUCLEATED MORPHOLOGY PRESENT [None]
